FAERS Safety Report 21757914 (Version 1)
Quarter: 2022Q4

REPORT INFORMATION
  Report Type: Spontaneous
  Country: US (occurrence: None)
  Receive Date: 20221221
  Receipt Date: 20221221
  Transmission Date: 20230113
  Serious: Yes (Other)
  Sender: FDA-Public Use
  Company Number: US-ROCHE-3212535

PATIENT
  Age: 62 Year
  Sex: Male

DRUGS (2)
  1. ACTIVASE [Suspect]
     Active Substance: ALTEPLASE
     Indication: Ischaemic stroke
     Dosage: NO
     Route: 042
     Dates: start: 20221031, end: 20221031
  2. ACTIVASE [Suspect]
     Active Substance: ALTEPLASE

REACTIONS (1)
  - Angioedema [Unknown]
